FAERS Safety Report 16396673 (Version 1)
Quarter: 2019Q2

REPORT INFORMATION
  Report Type: Spontaneous
  Country: AU (occurrence: AU)
  Receive Date: 20190606
  Receipt Date: 20190606
  Transmission Date: 20190711
  Serious: Yes (Other)
  Sender: FDA-Public Use
  Company Number: AU-SUN PHARMACEUTICAL INDUSTRIES LTD-2018R1-192792

PATIENT
  Age: 69 Year
  Sex: Female

DRUGS (2)
  1. HYDROXYCHLOROQUINE [Suspect]
     Active Substance: HYDROXYCHLOROQUINE
     Indication: SKIN DISORDER
     Dosage: 500 MILLIGRAM, DAILY (11.4 MG/KG ACTUAL BODY WEIGHT CUMULATIVE DOSE GREATER THAN 440 G)
     Route: 065
  2. HYDROXYCHLOROQUINE [Suspect]
     Active Substance: HYDROXYCHLOROQUINE
     Indication: LICHEN PLANOPILARIS

REACTIONS (6)
  - Retinal toxicity [Unknown]
  - Vision blurred [Unknown]
  - Visual field defect [Not Recovered/Not Resolved]
  - Retinal injury [Not Recovered/Not Resolved]
  - Macular degeneration [Not Recovered/Not Resolved]
  - Overdose [Unknown]
